FAERS Safety Report 4408280-3 (Version None)
Quarter: 2004Q3

REPORT INFORMATION
  Report Type: 
  Country: None (occurrence: None)
  Receive Date: 20040722
  Receipt Date: 20040706
  Transmission Date: 20050211
  Serious: Yes (Other)
  Sender: FDA-Public Use
  Company Number: ST-2004-007927

PATIENT
  Age: 90 Year
  Sex: Female

DRUGS (5)
  1. OLMETEC [Suspect]
     Indication: HYPERTENSION
     Dosage: 10 MG QD PO
     Route: 048
     Dates: start: 20040604, end: 20040626
  2. SANAMILON [Concomitant]
  3. DOSPEROPIN [Concomitant]
  4. DIOVAN [Concomitant]
  5. CALBLOCK [Concomitant]

REACTIONS (2)
  - ARRHYTHMIA [None]
  - MALAISE [None]
